FAERS Safety Report 25081753 (Version 1)
Quarter: 2025Q1

REPORT INFORMATION
  Report Type: Spontaneous
  Country: CA (occurrence: CA)
  Receive Date: 20250317
  Receipt Date: 20250317
  Transmission Date: 20250408
  Serious: Yes (Other)
  Sender: PFIZER
  Company Number: CA-PFIZER INC-202300327626

PATIENT
  Age: 49 Year
  Sex: Female

DRUGS (1)
  1. RUXIENCE [Suspect]
     Active Substance: RITUXIMAB-PVVR
     Indication: Microscopic polyangiitis
     Route: 042
     Dates: start: 20240402, end: 20240402

REACTIONS (9)
  - Syndactyly [Unknown]
  - Pneumonia [Recovered/Resolved]
  - Menopausal symptoms [Unknown]
  - Atelectasis [Unknown]
  - Respiratory tract infection [Unknown]
  - Viral infection [Unknown]
  - Pyrexia [Unknown]
  - Blood pressure diastolic increased [Unknown]
  - Off label use [Unknown]

NARRATIVE: CASE EVENT DATE: 20240402
